FAERS Safety Report 14388914 (Version 3)
Quarter: 2019Q4

REPORT INFORMATION
  Report Type: Spontaneous
  Country: US (occurrence: US)
  Receive Date: 20180115
  Receipt Date: 20191212
  Transmission Date: 20200122
  Serious: Yes (Other)
  Sender: FDA-Public Use
  Company Number: US-SA-2017SA230528

PATIENT
  Sex: Female
  Weight: 76 kg

DRUGS (11)
  1. TAXOTERE [Suspect]
     Active Substance: DOCETAXEL
     Indication: BREAST CANCER
     Dosage: 139 MG,Q3W
     Route: 042
     Dates: start: 20111117, end: 20111117
  2. BENADRYL [Concomitant]
     Active Substance: DIPHENHYDRAMINE HYDROCHLORIDE
  3. FILGRASTIM [Concomitant]
     Active Substance: FILGRASTIM
  4. PARAPLATIN [Concomitant]
     Active Substance: CARBOPLATIN
     Indication: BREAST CANCER FEMALE
     Dosage: UNK
     Dates: start: 20191117, end: 20191117
  5. LEVOTHYROXINE. [Concomitant]
     Active Substance: LEVOTHYROXINE
     Dosage: 137 UG,QD
     Route: 048
     Dates: start: 20100716
  6. LORAZEPAM. [Concomitant]
     Active Substance: LORAZEPAM
  7. PREMARIN [Concomitant]
     Active Substance: ESTROGENS, CONJUGATED
     Dosage: UNK
     Dates: start: 2005
  8. PARAPLATIN [Concomitant]
     Active Substance: CARBOPLATIN
     Indication: PAPILLARY THYROID CANCER
     Dosage: UNK
     Dates: start: 20190329, end: 20190329
  9. TRASTUZUMAB. [Concomitant]
     Active Substance: TRASTUZUMAB
     Indication: BREAST CANCER FEMALE
     Dosage: UNK
     Dates: start: 20190329, end: 20190329
  10. TRASTUZUMAB. [Concomitant]
     Active Substance: TRASTUZUMAB
     Indication: PAPILLARY THYROID CANCER
     Dosage: UNK
     Dates: start: 20111117, end: 20111117
  11. TAXOTERE [Suspect]
     Active Substance: DOCETAXEL
     Indication: PAPILLARY THYROID CANCER
     Dosage: 139 MG, Q3W
     Route: 042
     Dates: start: 20120329, end: 20120329

REACTIONS (2)
  - Alopecia [Recovering/Resolving]
  - Psychological trauma [Unknown]

NARRATIVE: CASE EVENT DATE: 201112
